FAERS Safety Report 9205218 (Version 1)
Quarter: 2013Q2

REPORT INFORMATION
  Report Type: Spontaneous
  Country: GB (occurrence: GB)
  Receive Date: 20130402
  Receipt Date: 20130402
  Transmission Date: 20140414
  Serious: Yes (Life-Threatening)
  Sender: FDA-Public Use
  Company Number: GB-MYLANLABS-2013S1006596

PATIENT
  Age: 86 Year
  Sex: Female
  Weight: 68 kg

DRUGS (3)
  1. INDAPAMIDE [Suspect]
     Indication: HYPERTENSION
     Route: 048
     Dates: start: 201210, end: 20130201
  2. CO-DYDRAMOL [Concomitant]
     Indication: SCIATICA
  3. OLMESARTAN [Concomitant]
     Indication: HYPERTENSION

REACTIONS (3)
  - Decreased appetite [Recovering/Resolving]
  - Ataxia [Recovering/Resolving]
  - Hyponatraemia [Recovering/Resolving]
